FAERS Safety Report 9761340 (Version 3)
Quarter: 2014Q3

REPORT INFORMATION
  Report Type: Spontaneous
  Country: US (occurrence: US)
  Receive Date: 20131216
  Receipt Date: 20140813
  Transmission Date: 20150326
  Serious: Yes (Hospitalization, Other)
  Sender: FDA-Public Use
  Company Number: US-009507513-1312USA007078

PATIENT
  Sex: Female
  Weight: 81.18 kg

DRUGS (1)
  1. NUVARING [Suspect]
     Active Substance: ETHINYL ESTRADIOL\ETONOGESTREL
     Indication: CONTRACEPTION
     Dosage: INSERT 1 EVERY 3 WEEKS
     Route: 067
     Dates: start: 201111, end: 201202

REACTIONS (5)
  - Asthma [Unknown]
  - Chest pain [Recovered/Resolved]
  - Pulmonary embolism [Unknown]
  - Drug level below therapeutic [Unknown]
  - Sinus tachycardia [Recovering/Resolving]

NARRATIVE: CASE EVENT DATE: 20120209
